FAERS Safety Report 7800125-4 (Version None)
Quarter: 2011Q4

REPORT INFORMATION
  Report Type: 
  Country: None (occurrence: None)
  Receive Date: 20111006
  Receipt Date: 20110926
  Transmission Date: 20120403
  Serious: Yes (Other)
  Sender: FDA-Public Use
  Company Number: US-BAYER-2011-007251

PATIENT
  Age: 23 Year
  Sex: Female
  Weight: 63.492 kg

DRUGS (16)
  1. SULFASALAZINE [Concomitant]
  2. METAMUCIL-2 [Concomitant]
  3. FLOVENT [Concomitant]
  4. ST. JOHN'S WORT [Concomitant]
     Dosage: UNK
     Dates: start: 20080101
  5. ADVAIR DISKUS 100/50 [Concomitant]
     Dosage: UNK
     Dates: start: 20090101
  6. NSAID'S [Concomitant]
     Dosage: UNK
     Dates: start: 19900101
  7. DROSPIRENONE AND ETHINYL ESTRADIOL [Suspect]
     Indication: CONTRACEPTION
     Dosage: UNK
     Route: 048
     Dates: start: 20070101, end: 20090101
  8. YASMIN [Suspect]
     Indication: CONTRACEPTION
     Dosage: UNK
     Route: 048
     Dates: start: 20070101, end: 20090101
  9. LIALDA [Concomitant]
  10. PROTON PUMP INHIBITORS [Concomitant]
  11. ATROVENT [Concomitant]
     Dosage: UNK
     Dates: start: 20050101
  12. ALBUTEROL [Concomitant]
  13. KETOROLAC TROMETHAMINE [Concomitant]
  14. OMEPRAZOLE [Concomitant]
  15. ASACOL [Concomitant]
  16. PREDNISONE [Concomitant]

REACTIONS (2)
  - PAIN [None]
  - GALLBLADDER DISORDER [None]
